FAERS Safety Report 19716403 (Version 1)
Quarter: 2021Q3

REPORT INFORMATION
  Report Type: Spontaneous
  Country: US (occurrence: US)
  Receive Date: 20210819
  Receipt Date: 20210819
  Transmission Date: 20211014
  Serious: No
  Sender: FDA-Public Use
  Company Number: US-CELLTRION INC.-2021US008218

PATIENT

DRUGS (2)
  1. TRUXIMA [Suspect]
     Active Substance: RITUXIMAB-ABBS
     Indication: SJOGREN^S SYNDROME
     Dosage: 1000 MG EVERY 6 MONTHS
     Route: 065
     Dates: start: 20210510
  2. TRUXIMA [Suspect]
     Active Substance: RITUXIMAB-ABBS
     Indication: INTERSTITIAL LUNG DISEASE

REACTIONS (1)
  - Off label use [Unknown]
